FAERS Safety Report 8406887-X (Version None)
Quarter: 2012Q2

REPORT INFORMATION
  Report Type: 
  Country: None (occurrence: None)
  Receive Date: 20120529
  Receipt Date: 20040813
  Transmission Date: 20120825
  Serious: Yes (Death, Life-Threatening, Hospitalization, Other)
  Sender: FDA-Public Use
  Company Number: 02100-JPN-04-0218

PATIENT
  Age: 86 Year
  Sex: Male

DRUGS (1)
  1. PLETAL [Suspect]
     Indication: CEREBRAL INFARCTION
     Dosage: 100 MG, BID, OTHER
     Route: 050
     Dates: start: 20040629, end: 20040718

REACTIONS (15)
  - WHITE BLOOD CELL COUNT INCREASED [None]
  - HEPATIC CIRRHOSIS [None]
  - PLATELET COUNT DECREASED [None]
  - ANAEMIA [None]
  - INFECTION [None]
  - DECUBITUS ULCER [None]
  - BACTERIAL TEST POSITIVE [None]
  - PYREXIA [None]
  - PAIN [None]
  - RENAL FAILURE ACUTE [None]
  - GASTROINTESTINAL HAEMORRHAGE [None]
  - INFLAMMATION [None]
  - URINARY TRACT INFECTION [None]
  - HEPATIC FUNCTION ABNORMAL [None]
  - C-REACTIVE PROTEIN INCREASED [None]
